FAERS Safety Report 4597232-9 (Version None)
Quarter: 2005Q1

REPORT INFORMATION
  Report Type: 
  Country: None (occurrence: None)
  Receive Date: 20050303
  Receipt Date: 20050120
  Transmission Date: 20050727
  Serious: Yes (Death, Other)
  Sender: FDA-Public Use
  Company Number: 200510493US

PATIENT
  Sex: Male
  Weight: 74.1 kg

DRUGS (9)
  1. TAXOTERE [Suspect]
     Indication: METASTASES TO BONE
     Dates: start: 20041105, end: 20041105
  2. TAXOTERE [Suspect]
     Indication: PROSTATE CANCER METASTATIC
     Dates: start: 20041105, end: 20041105
  3. LISINOPRIL AND HYDROCHLOROTHIAZIDE [Concomitant]
     Indication: ESSENTIAL HYPERTENSION
     Dosage: DOSE: NOT PROVIDED
  4. ASPIRIN [Concomitant]
  5. VITAMIN E [Concomitant]
     Dosage: DOSE: NOT PROVIDED
  6. VITAMIN D [Concomitant]
     Dosage: DOSE: NOT PROVIDED
  7. CALCIUM GLUCONATE [Concomitant]
     Dosage: DOSE: NOT PROVIDED
  8. LANOXIN [Concomitant]
  9. MEGESTROL ACETATE [Concomitant]
     Route: 048

REACTIONS (2)
  - COMA [None]
  - RENAL TUBULAR ACIDOSIS [None]
